FAERS Safety Report 7292397-2 (Version None)
Quarter: 2011Q1

REPORT INFORMATION
  Report Type: 
  Country: None (occurrence: None)
  Receive Date: 20110215
  Receipt Date: 20110208
  Transmission Date: 20110831
  Serious: No
  Sender: FDA-Public Use
  Company Number: US-PFIZER INC-2011028274

PATIENT
  Sex: Female

DRUGS (1)
  1. XALATAN [Suspect]

REACTIONS (4)
  - INFLUENZA [None]
  - AGEUSIA [None]
  - EYE IRRITATION [None]
  - OCULAR HYPERAEMIA [None]
